FAERS Safety Report 15748172 (Version 1)
Quarter: 2018Q4

REPORT INFORMATION
  Report Type: Spontaneous
  Country: FR (occurrence: FR)
  Receive Date: 20181221
  Receipt Date: 20181221
  Transmission Date: 20190205
  Serious: Yes (Hospitalization, Other)
  Sender: FDA-Public Use
  Company Number: FR-AUROBINDO-AUR-APL-2018-060304

PATIENT
  Age: 74 Year
  Sex: Male

DRUGS (3)
  1. CLINDAMYCINE                       /00166001/ [Suspect]
     Active Substance: CLINDAMYCIN
     Indication: OSTEITIS
     Dosage: NP
     Route: 065
     Dates: start: 20180809, end: 20181017
  2. FLUCONAZOLE. [Suspect]
     Active Substance: FLUCONAZOLE
     Indication: OSTEITIS
     Dosage: NP
     Route: 065
     Dates: start: 20180809, end: 20181017
  3. TAZOCILLINE [Suspect]
     Active Substance: PIPERACILLIN SODIUM\TAZOBACTAM SODIUM
     Indication: OSTEITIS
     Dosage: NP
     Route: 042
     Dates: start: 20180809, end: 20181017

REACTIONS (1)
  - Drug reaction with eosinophilia and systemic symptoms [Recovering/Resolving]

NARRATIVE: CASE EVENT DATE: 20181017
